FAERS Safety Report 9137211 (Version 2)
Quarter: 2014Q1

REPORT INFORMATION
  Report Type: Spontaneous
  Country: US (occurrence: US)
  Receive Date: 20130219
  Receipt Date: 20140213
  Transmission Date: 20141002
  Serious: No
  Sender: FDA-Public Use
  Company Number: US-BRISTOL-MYERS SQUIBB COMPANY-17141383

PATIENT
  Age: 74 Year
  Sex: Female
  Weight: 68.93 kg

DRUGS (5)
  1. ORENCIA [Suspect]
     Indication: RHEUMATOID ARTHRITIS
     Dosage: LAST INFUSION WAS ON 12NOV2012,4TH DOSE ON JAN13
     Route: 042
     Dates: start: 20121026
  2. PREDNISONE [Concomitant]
     Indication: ASTHMA
  3. ALBUTEROL [Concomitant]
     Indication: ASTHMA
  4. PULMICORT [Concomitant]
     Indication: ASTHMA
  5. METHOTREXATE [Concomitant]

REACTIONS (1)
  - Rheumatoid nodule [Unknown]
